FAERS Safety Report 24357466 (Version 1)
Quarter: 2024Q3

REPORT INFORMATION
  Report Type: Spontaneous
  Country: FR (occurrence: FR)
  Receive Date: 20240924
  Receipt Date: 20240924
  Transmission Date: 20241016
  Serious: Yes (Hospitalization)
  Sender: TEVA
  Company Number: None

PATIENT
  Age: 68 Year
  Sex: Female

DRUGS (3)
  1. ETOPOSIDE [Suspect]
     Active Substance: ETOPOSIDE
     Indication: Bronchial carcinoma
     Dosage: TIME INTERVAL: CYCLICAL: C1J1 06/25/24, ADMINISTERED ON D1 D2 AND D3 THEREFORE 06/25+26+27/24
     Route: 042
     Dates: start: 20240625
  2. CARBOPLATIN [Suspect]
     Active Substance: CARBOPLATIN
     Indication: Bronchial carcinoma
     Dosage: TIME INTERVAL: CYCLICAL: C1J1 06/25/24, ADMINISTERED ON D1 D2 AND D3 THEREFORE 06/25+26+27/24
     Route: 042
     Dates: start: 20240625
  3. OSIMERTINIB MESYLATE [Concomitant]
     Active Substance: OSIMERTINIB MESYLATE
     Indication: Product used for unknown indication
     Route: 065

REACTIONS (1)
  - Agranulocytosis [Recovered/Resolved]

NARRATIVE: CASE EVENT DATE: 20240703
